FAERS Safety Report 4653996-7 (Version None)
Quarter: 2005Q2

REPORT INFORMATION
  Report Type: 
  Country: None (occurrence: None)
  Receive Date: 20050504
  Receipt Date: 20050422
  Transmission Date: 20051028
  Serious: Yes (Death)
  Sender: FDA-Public Use
  Company Number: BRO-008581

PATIENT
  Age: 79 Year
  Sex: Female

DRUGS (2)
  1. IOPAMIDOL-300 [Suspect]
     Indication: PYELONEPHRITIS
     Dosage: IV
     Route: 042
     Dates: start: 20050418, end: 20050418
  2. IOPAMIDOL-300 [Suspect]
     Indication: UROGRAPHY
     Dosage: IV
     Route: 042
     Dates: start: 20050418, end: 20050418

REACTIONS (1)
  - PULMONARY EMBOLISM [None]
